FAERS Safety Report 17189193 (Version 1)
Quarter: 2019Q4

REPORT INFORMATION
  Report Type: Spontaneous
  Country: GB (occurrence: GB)
  Receive Date: 20191223
  Receipt Date: 20191223
  Transmission Date: 20200122
  Serious: Yes (Death, Life-Threatening, Hospitalization, Disabling, Congenital Anomaly)
  Sender: FDA-Public Use
  Company Number: GB-ACCORD-165637

PATIENT
  Age: 73 Year
  Sex: Male
  Weight: 117 kg

DRUGS (16)
  1. FUROSEMIDE. [Concomitant]
     Active Substance: FUROSEMIDE
     Dosage: EACH MORNING
     Dates: end: 20190821
  2. VENETOCLAX. [Suspect]
     Active Substance: VENETOCLAX
     Indication: CHRONIC LYMPHOCYTIC LEUKAEMIA
     Dosage: EACH MORNING
     Route: 048
     Dates: start: 20190802, end: 20190808
  3. RASBURICASE [Concomitant]
     Active Substance: RASBURICASE
     Dates: start: 20190802
  4. EPLERENONE. [Concomitant]
     Active Substance: EPLERENONE
     Indication: HYPOTENSION
  5. VENETOCLAX. [Suspect]
     Active Substance: VENETOCLAX
     Indication: CHRONIC LYMPHOCYTIC LEUKAEMIA
     Dates: start: 20190817, end: 20190902
  6. ALLOPURINOL. [Suspect]
     Active Substance: ALLOPURINOL
     Indication: TUMOUR LYSIS SYNDROME
     Dosage: EACH MORNING
     Route: 048
     Dates: start: 201602, end: 20190815
  7. FEBUXOSTAT. [Suspect]
     Active Substance: FEBUXOSTAT
     Indication: TUMOUR LYSIS SYNDROME
     Dosage: EACH MORNING
     Route: 048
     Dates: start: 20190817, end: 20190902
  8. ACICLOVIR [Concomitant]
     Active Substance: ACYCLOVIR
  9. BISOPROLOL [Concomitant]
     Active Substance: BISOPROLOL
     Indication: HEART RATE DECREASED
     Dates: end: 20190904
  10. RAMIPRIL. [Concomitant]
     Active Substance: RAMIPRIL
     Indication: HYPOTENSION
     Dates: end: 20190817
  11. PIPERACILLIN. [Concomitant]
     Active Substance: PIPERACILLIN SODIUM
  12. INSULIN HUMAN [Concomitant]
     Active Substance: INSULIN HUMAN
  13. VENETOCLAX. [Suspect]
     Active Substance: VENETOCLAX
     Indication: CHRONIC LYMPHOCYTIC LEUKAEMIA
     Dosage: EACH MORNING
     Dates: start: 20190809, end: 20190816
  14. SULFAMETHOXAZOLE/TRIMETHOPRIM [Concomitant]
     Active Substance: SULFAMETHOXAZOLE\TRIMETHOPRIM
     Dosage: MONDAY, WEDNESDAY AND FRIDAY
     Dates: start: 201602, end: 20190821
  15. RITUXIMAB. [Concomitant]
     Active Substance: RITUXIMAB
  16. ATORVASTATIN [Concomitant]
     Active Substance: ATORVASTATIN
     Dosage: EACH NIGHT
     Dates: end: 20190904

REACTIONS (18)
  - Acute kidney injury [Unknown]
  - Folliculitis [Unknown]
  - Pancytopenia [Unknown]
  - Blister [Unknown]
  - Condition aggravated [Unknown]
  - Heart rate abnormal [Unknown]
  - Skin exfoliation [Unknown]
  - Oedema peripheral [Unknown]
  - Dyspnoea [Unknown]
  - Toxic epidermal necrolysis [Fatal]
  - Rash pruritic [Unknown]
  - Skin weeping [Unknown]
  - Erythema [Unknown]
  - Anaemia [Unknown]
  - Chest pain [Unknown]
  - Angina pectoris [Unknown]
  - Cardiac failure [Unknown]
  - Skin disorder [Unknown]

NARRATIVE: CASE EVENT DATE: 20190726
